FAERS Safety Report 15879419 (Version 1)
Quarter: 2019Q1

REPORT INFORMATION
  Report Type: Spontaneous
  Country: US (occurrence: US)
  Receive Date: 20190104
  Receipt Date: 20190104
  Transmission Date: 20190417
  Serious: Yes (Hospitalization)
  Sender: FDA-Public Use
  Company Number: None

PATIENT
  Age: 23 Year
  Sex: Male

DRUGS (29)
  1. BUSPIRONE [Concomitant]
     Active Substance: BUSPIRONE HYDROCHLORIDE
  2. DIVALPROEX DR [Concomitant]
     Active Substance: DIVALPROEX SODIUM
  3. DRONABINOL. [Concomitant]
     Active Substance: DRONABINOL
  4. POLYETHY GLYCOL [Concomitant]
  5. PULMOZYME [Concomitant]
     Active Substance: DORNASE ALFA
  6. QVAR [Concomitant]
     Active Substance: BECLOMETHASONE DIPROPIONATE
  7. SERTRALINE [Concomitant]
     Active Substance: SERTRALINE HYDROCHLORIDE
  8. HYOSCYAMINE ER [Concomitant]
     Active Substance: HYOSCYAMINE SULFATE
  9. COMPLETE FORM [Concomitant]
  10. ENSURE [Concomitant]
     Active Substance: AMINO ACIDS\DEXTROSE\ELECTROLYTES NOS\SOYBEAN OIL\VITAMINS
  11. PANTOPRAZOLE [Concomitant]
     Active Substance: PANTOPRAZOLE
  12. PROAIR HFA [Concomitant]
     Active Substance: ALBUTEROL SULFATE
  13. SOD CHLORIDE 7% NEB SOLN [Concomitant]
  14. TOBI PODHALER [Suspect]
     Active Substance: TOBRAMYCIN
     Indication: CYSTIC FIBROSIS
     Route: 055
     Dates: start: 20181210
  15. FUROSEMIDE. [Concomitant]
     Active Substance: FUROSEMIDE
  16. GABAPENTIN. [Concomitant]
     Active Substance: GABAPENTIN
  17. AZITHROMYCIN ANHYDROUS. [Concomitant]
     Active Substance: AZITHROMYCIN ANHYDROUS
  18. CREON [Concomitant]
     Active Substance: PANCRELIPASE AMYLASE\PANCRELIPASE LIPASE\PANCRELIPASE PROTEASE
  19. GAS RELIEF CHEW TABS [Concomitant]
  20. LORATADINE. [Concomitant]
     Active Substance: LORATADINE
  21. NITRO-BID OINTMENT [Concomitant]
  22. CLONIDINE. [Concomitant]
     Active Substance: CLONIDINE
  23. VITAMIN D [Concomitant]
     Active Substance: CHOLECALCIFEROL
  24. FLUTICASONE. [Concomitant]
     Active Substance: FLUTICASONE
  25. OLANZAPINE. [Concomitant]
     Active Substance: OLANZAPINE
  26. ONDASETRON ODT [Concomitant]
  27. RANITIDINE. [Concomitant]
     Active Substance: RANITIDINE
  28. URSODIOL. [Concomitant]
     Active Substance: URSODIOL
  29. A-HYDROCORT [Concomitant]
     Active Substance: HYDROCORTISONE SODIUM SUCCINATE

REACTIONS (1)
  - Dyspnoea [None]

NARRATIVE: CASE EVENT DATE: 20190101
